FAERS Safety Report 24747619 (Version 1)
Quarter: 2024Q4

REPORT INFORMATION
  Report Type: Spontaneous
  Country: US (occurrence: US)
  Receive Date: 20241218
  Receipt Date: 20241218
  Transmission Date: 20250114
  Serious: Yes (Other)
  Sender: COOPERSURGICAL
  Company Number: US-COOPERSURGICAL, INC.-2024CPS003916

PATIENT
  Age: 40 Year
  Sex: Female
  Weight: 117.91 kg

DRUGS (1)
  1. PARAGARD T 380A [Suspect]
     Active Substance: COPPER
     Indication: Contraception
     Dosage: UNK
     Route: 015
     Dates: start: 20140101, end: 20200918

REACTIONS (7)
  - Uterine leiomyoma [Unknown]
  - Uterine polyp [Unknown]
  - Embedded device [Unknown]
  - Off label use [Unknown]
  - Complication of device removal [Unknown]
  - Obesity [Unknown]
  - Abnormal uterine bleeding [Unknown]

NARRATIVE: CASE EVENT DATE: 20200101
